FAERS Safety Report 26162495 (Version 1)
Quarter: 2025Q4

REPORT INFORMATION
  Report Type: Spontaneous
  Country: EU (occurrence: EU)
  Receive Date: 20251216
  Receipt Date: 20251216
  Transmission Date: 20260118
  Serious: Yes (Other)
  Sender: AUROBINDO
  Company Number: EU-LRB-00968322

PATIENT
  Age: 81 Year
  Sex: Male

DRUGS (1)
  1. ACETYLCYSTEINE [Suspect]
     Active Substance: ACETYLCYSTEINE
     Indication: Cough
     Dosage: 600 MILLIGRAM, ONCE A DAY (1 TABLET ONCE A DAY)
     Route: 065
     Dates: start: 20240414, end: 20240415

REACTIONS (1)
  - Angioedema [Recovered/Resolved]
